FAERS Safety Report 12382860 (Version 2)
Quarter: 2016Q2

REPORT INFORMATION
  Report Type: Spontaneous
  Country: LB (occurrence: LB)
  Receive Date: 20160518
  Receipt Date: 20160609
  Transmission Date: 20160815
  Serious: Yes (Other)
  Sender: FDA-Public Use
  Company Number: LB-GLAXOSMITHKLINE-LB2016GSK069856

PATIENT
  Age: 33 Year
  Sex: Male

DRUGS (4)
  1. ZINNAT [Suspect]
     Active Substance: CEFUROXIME AXETIL
     Indication: PROSTATITIS
  2. ZINNAT [Suspect]
     Active Substance: CEFUROXIME AXETIL
     Indication: CHEST PAIN
  3. ZINNAT [Suspect]
     Active Substance: CEFUROXIME AXETIL
     Indication: TONSILLITIS
  4. ZINNAT [Suspect]
     Active Substance: CEFUROXIME AXETIL
     Indication: RESPIRATORY TRACT INFECTION
     Dosage: 500 MG, BID
     Route: 048
     Dates: start: 20160513, end: 20160516

REACTIONS (4)
  - Product use issue [Unknown]
  - Hypothermia [Recovered/Resolved]
  - Abdominal pain [Recovered/Resolved]
  - Chills [Recovered/Resolved]

NARRATIVE: CASE EVENT DATE: 20160513
